FAERS Safety Report 8076672-X (Version None)
Quarter: 2012Q1

REPORT INFORMATION
  Report Type: 
  Country: None (occurrence: None)
  Receive Date: 20120127
  Receipt Date: 20120117
  Transmission Date: 20120608
  Serious: Yes (Other)
  Sender: FDA-Public Use
  Company Number: US-PFIZER INC-2012010584

PATIENT
  Age: 72 Year
  Sex: Female

DRUGS (9)
  1. PRILOSEC [Concomitant]
     Dosage: 20 MG, UNK
  2. LIDOCAINE HYDROCHLORIDE [Suspect]
     Indication: ANAESTHESIA
     Dosage: 4 MG, UNK
     Dates: start: 20120106
  3. CARVEDILOL [Concomitant]
     Dosage: 25 MG, UNK
     Route: 048
  4. ALLEGRA [Concomitant]
     Dosage: UNK
  5. HYDROXYCHLOROQUINE [Concomitant]
     Dosage: 200 MG, UNK
  6. METHIMAZOLE [Concomitant]
     Dosage: 5 MG, UNK
  7. VITAMIN D [Concomitant]
     Dosage: 50000 UNK, UNK
  8. COLLAGENASE CLOSTRIDIUM HISTOLYTICUM [Suspect]
     Indication: DUPUYTREN'S CONTRACTURE
     Dosage: 1 IN 1 DAY
     Route: 026
     Dates: start: 20120105
  9. CEPHALEXIN [Concomitant]
     Dosage: 500 MG, UNK

REACTIONS (2)
  - PRESYNCOPE [None]
  - LACERATION [None]
